FAERS Safety Report 7414444-7 (Version None)
Quarter: 2011Q2

REPORT INFORMATION
  Report Type: 
  Country: None (occurrence: None)
  Receive Date: 20110414
  Receipt Date: 20101029
  Transmission Date: 20111010
  Serious: Yes (Hospitalization)
  Sender: FDA-Public Use
  Company Number: US-BAYER-201021920NA

PATIENT
  Age: 34 Year
  Sex: Female
  Weight: 67.574 kg

DRUGS (2)
  1. FERROUS SULFATE [Concomitant]
     Dosage: UNK
     Dates: start: 20090401, end: 20090801
  2. YAZ [Suspect]
     Indication: DYSFUNCTIONAL UTERINE BLEEDING
     Dosage: AS USED DOSE: UNK
     Route: 048
     Dates: start: 20090419, end: 20090508

REACTIONS (3)
  - OEDEMA PERIPHERAL [None]
  - DEEP VEIN THROMBOSIS [None]
  - PAIN IN EXTREMITY [None]
